FAERS Safety Report 5706922-3 (Version None)
Quarter: 2008Q2

REPORT INFORMATION
  Report Type: 
  Country: None (occurrence: None)
  Receive Date: 20080416
  Receipt Date: 20080410
  Transmission Date: 20081010
  Serious: Yes (Death, Hospitalization)
  Sender: FDA-Public Use
  Company Number: DE-WYE-G01310008

PATIENT
  Sex: Female

DRUGS (3)
  1. TREVILOR RETARD [Suspect]
     Route: 048
     Dates: start: 20080101
  2. TREVILOR RETARD [Suspect]
     Route: 048
     Dates: end: 20080301
  3. TREVILOR RETARD [Suspect]
     Route: 048
     Dates: start: 20080301, end: 20080301

REACTIONS (4)
  - ASPHYXIA [None]
  - COMPLETED SUICIDE [None]
  - HOSTILITY [None]
  - SUICIDE ATTEMPT [None]
